FAERS Safety Report 13921641 (Version 1)
Quarter: 2017Q3

REPORT INFORMATION
  Report Type: Spontaneous
  Country: KR (occurrence: KR)
  Receive Date: 20170830
  Receipt Date: 20170830
  Transmission Date: 20171127
  Serious: Yes (Other)
  Sender: FDA-Public Use
  Company Number: KR-MYLANLABS-2017M1053431

PATIENT
  Age: 55 Year
  Sex: Male

DRUGS (7)
  1. METHYLPHENIDATE. [Suspect]
     Active Substance: METHYLPHENIDATE
     Indication: LOCKED-IN SYNDROME
     Dosage: 10 MG/D, THE DOSE WAS FURTHER INCREASED TO 40 MG/D OVER 5 WEEKS
     Route: 065
  2. METHYLPHENIDATE. [Suspect]
     Active Substance: METHYLPHENIDATE
     Dosage: 40 MG/D
     Route: 065
  3. ATOMOXETINE. [Suspect]
     Active Substance: ATOMOXETINE HYDROCHLORIDE
     Dosage: 40 MG/D OVER THE 5 WEEK PERIOD, THE DOSE WAS FURTHER INCREASED TO 60MG
     Route: 065
  4. ATOMOXETINE. [Suspect]
     Active Substance: ATOMOXETINE HYDROCHLORIDE
     Dosage: 60MG
     Route: 065
  5. ATOMOXETINE. [Suspect]
     Active Substance: ATOMOXETINE HYDROCHLORIDE
     Indication: LOCKED-IN SYNDROME
     Dosage: 10 MG/D, THE DOSE WAS FURTHER INCREASED TO 40 MG/D OVER THE 5 WEEK PERIOD
     Route: 065
  6. BENSERAZIDE W/LEVODOPA [Suspect]
     Active Substance: BENSERAZIDE\LEVODOPA
     Dosage: LEVODOPA/BENSERAZIDE: 450/112.5 MG/D
     Route: 065
  7. BENSERAZIDE W/LEVODOPA [Suspect]
     Active Substance: BENSERAZIDE\LEVODOPA
     Indication: LOCKED-IN SYNDROME
     Dosage: LEVODOPA/BENSERAZIDE: 100MG/25MG, THE DOSE WAS FURTHER INCREASED TO 450/112.5 MG/D OVER 5 WEEKS
     Route: 065

REACTIONS (1)
  - Serotonin syndrome [Recovered/Resolved]
